FAERS Safety Report 8891242 (Version 3)
Quarter: 2013Q2

REPORT INFORMATION
  Report Type: Spontaneous
  Country: US (occurrence: US)
  Receive Date: 20121107
  Receipt Date: 20130422
  Transmission Date: 20140414
  Serious: Yes (Death, Other)
  Sender: FDA-Public Use
  Company Number: US-009507513-1211USA001095

PATIENT
  Age: 86 Year
  Sex: Male
  Weight: 130.16 kg

DRUGS (1)
  1. MIRALAX [Suspect]
     Indication: CONSTIPATION
     Dosage: 17 G, QPM
     Route: 048

REACTIONS (2)
  - Death [Fatal]
  - Renal failure [Unknown]
